FAERS Safety Report 24635598 (Version 1)
Quarter: 2024Q4

REPORT INFORMATION
  Report Type: Spontaneous
  Country: US (occurrence: US)
  Receive Date: 20241119
  Receipt Date: 20241119
  Transmission Date: 20250114
  Serious: No
  Sender: CATALYST PHARMA
  Company Number: US-CATALYST PHARMACEUTICALS-US-CATA-24-00834

PATIENT
  Sex: Male
  Weight: 32.653 kg

DRUGS (6)
  1. AGAMREE [Suspect]
     Active Substance: VAMOROLONE
     Indication: Duchenne muscular dystrophy
     Dosage: 4.6 ML
     Route: 048
     Dates: start: 20240314, end: 2024
  2. AGAMREE [Suspect]
     Active Substance: VAMOROLONE
     Dosage: 4.9 ML 1 DAILY
     Route: 048
     Dates: start: 2024
  3. VITAMIN D [Concomitant]
     Active Substance: VITAMIN D NOS
     Indication: Product used for unknown indication
     Dosage: 2000 UNITS DAILY
     Route: 065
  4. MOTRIN [Concomitant]
     Active Substance: IBUPROFEN
     Indication: Product used for unknown indication
     Dosage: AS NEEDED 100 MG PER 5 ML
     Route: 065
  5. ALLEGRA CHILDREN^S [Concomitant]
     Indication: Product used for unknown indication
     Dosage: 30 MG AS NEEDED
     Route: 065
  6. ZYRTEC CHILDREN^S ALLERGIES [Concomitant]
     Indication: Product used for unknown indication
     Dosage: 5 MG PER 5 MG AS NEEDED
     Route: 065

REACTIONS (1)
  - Ear infection [Recovered/Resolved]

NARRATIVE: CASE EVENT DATE: 20240101
